FAERS Safety Report 26097304 (Version 1)
Quarter: 2025Q4

REPORT INFORMATION
  Report Type: Spontaneous
  Country: US (occurrence: US)
  Receive Date: 20251127
  Receipt Date: 20251127
  Transmission Date: 20260117
  Serious: Yes (Hospitalization)
  Sender: MERCK SHARP & DOHME LLC
  Company Number: US-009507513-2354775

PATIENT
  Age: 32 Year
  Sex: Male

DRUGS (2)
  1. ERTUGLIFLOZIN [Suspect]
     Active Substance: ERTUGLIFLOZIN
     Indication: Type 2 diabetes mellitus
  2. INSULIN LISPRO [Concomitant]
     Active Substance: INSULIN LISPRO
     Dosage: WITH MEALS

REACTIONS (1)
  - Euglycaemic diabetic ketoacidosis [Recovered/Resolved]
